FAERS Safety Report 7019817-2 (Version None)
Quarter: 2010Q3

REPORT INFORMATION
  Report Type: 
  Country: None (occurrence: None)
  Receive Date: 20100929
  Receipt Date: 20100921
  Transmission Date: 20110219
  Serious: Yes (Hospitalization, Other)
  Sender: FDA-Public Use
  Company Number: US-ELI_LILLY_AND_COMPANY-US201009005886

PATIENT
  Age: 68 Year
  Sex: Female

DRUGS (21)
  1. GEMCITABINE HCL [Suspect]
     Indication: PANCREATIC CARCINOMA
     Dosage: 1000 MG/M2, UNKNOWN
     Route: 042
     Dates: start: 20100303
  2. GEMCITABINE HCL [Suspect]
     Dosage: 750 MG/M2, UNKNOWN
     Route: 042
     Dates: start: 20100310
  3. GEMCITABINE HCL [Suspect]
     Dosage: 500 MG/M2, UNKNOWN
     Route: 042
     Dates: start: 20100427
  4. TARCEVA [Suspect]
     Indication: PANCREATIC CARCINOMA
     Dosage: 100 MG, DAILY (1/D)
     Route: 048
     Dates: start: 20100303
  5. CLOBETASOL PROPIONATE [Concomitant]
  6. UBIDECARENONE [Concomitant]
  7. CREON [Concomitant]
  8. DARVOCET-N 100 [Concomitant]
  9. FLAXSEED OIL [Concomitant]
  10. FLUOCINONIDE [Concomitant]
  11. LUNESTA [Concomitant]
  12. PRILOSEC [Concomitant]
  13. TURMERIC [Concomitant]
  14. ASCORBIC ACID [Concomitant]
  15. VITAMIN D [Concomitant]
  16. VITAMIN K TAB [Concomitant]
  17. XANAX [Concomitant]
  18. ZOLOFT [Concomitant]
  19. ATARAX [Concomitant]
  20. MACROBID [Concomitant]
  21. COMPAZINE [Concomitant]

REACTIONS (5)
  - DEHYDRATION [None]
  - GASTROINTESTINAL HAEMORRHAGE [None]
  - NEUTROPHIL COUNT DECREASED [None]
  - PYREXIA [None]
  - VOMITING [None]
